FAERS Safety Report 6849503-0 (Version None)
Quarter: 2010Q3

REPORT INFORMATION
  Report Type: 
  Country: None (occurrence: None)
  Receive Date: 20100716
  Receipt Date: 20071227
  Transmission Date: 20110219
  Serious: No
  Sender: FDA-Public Use
  Company Number: US-PFIZER INC-2007082246

PATIENT
  Sex: Female
  Weight: 79.8 kg

DRUGS (3)
  1. CHANTIX [Suspect]
     Indication: SMOKING CESSATION THERAPY
     Dates: start: 20070901
  2. CHANTIX [Suspect]
     Dates: start: 20070901, end: 20071001
  3. CLARITIN [Concomitant]

REACTIONS (6)
  - ABNORMAL DREAMS [None]
  - ANXIETY [None]
  - DISCOMFORT [None]
  - DRUG DOSE OMISSION [None]
  - IMPAIRED DRIVING ABILITY [None]
  - TREMOR [None]
